FAERS Safety Report 8024781-3 (Version None)
Quarter: 2012Q1

REPORT INFORMATION
  Report Type: 
  Country: None (occurrence: None)
  Receive Date: 20120105
  Receipt Date: 20111229
  Transmission Date: 20120608
  Serious: Yes (Hospitalization)
  Sender: FDA-Public Use
  Company Number: US-JNJFOC-20111210284

PATIENT
  Sex: Female
  Weight: 43.6 kg

DRUGS (4)
  1. BUDESONIDE [Concomitant]
  2. PREDNISONE TAB [Concomitant]
  3. INFLIXIMAB, RECOMBINANT [Suspect]
     Indication: INFLAMMATORY BOWEL DISEASE
     Route: 042
  4. CIMZIA [Concomitant]
     Dates: start: 20101011

REACTIONS (1)
  - ABDOMINAL ABSCESS [None]
